FAERS Safety Report 9699019 (Version 2)
Quarter: 2013Q4

REPORT INFORMATION
  Report Type: Report from Study
  Country: US (occurrence: US)
  Receive Date: 20131120
  Receipt Date: 20131120
  Transmission Date: 20140711
  Serious: Yes (Other)
  Sender: FDA-Public Use
  Company Number: US-TEVA-435452USA

PATIENT
  Age: 33 Year
  Sex: Female
  Weight: 58.11 kg

DRUGS (4)
  1. PROVIGIL [Suspect]
     Indication: CIRCADIAN RHYTHM SLEEP DISORDER
     Route: 048
     Dates: start: 20130606, end: 20130830
  2. FOLIC ACID [Concomitant]
     Indication: PREGNANCY
     Dosage: 800 MILLIGRAM DAILY;
     Dates: start: 201308
  3. PRENATAL VITAMINS [Concomitant]
     Indication: PREGNANCY
     Dosage: 2 TABLETS
     Route: 048
     Dates: start: 20130923
  4. ESTAZOLAM [Concomitant]
     Indication: SLEEP DISORDER
     Dates: start: 20130607, end: 20130913

REACTIONS (1)
  - Abortion spontaneous [Unknown]
